FAERS Safety Report 19062105 (Version 2)
Quarter: 2021Q3

REPORT INFORMATION
  Report Type: Spontaneous
  Country: MX (occurrence: MX)
  Receive Date: 20210326
  Receipt Date: 20210705
  Transmission Date: 20211014
  Serious: Yes (Hospitalization)
  Sender: FDA-Public Use
  Company Number: MX-TEVA-2021-MX-1892858

PATIENT
  Age: 17 Year
  Sex: Male

DRUGS (2)
  1. FILGRASTIM [Suspect]
     Active Substance: FILGRASTIM
     Indication: HAEMATOPOIETIC STEM CELL MOBILISATION
     Dosage: 10 UG/KG DAILY; FIRST COURSE OF FILGRASTIM
     Route: 065
  2. FILGRASTIM [Suspect]
     Active Substance: FILGRASTIM
     Dosage: 10 UG/KG DAILY; TWO WEEKS PRIOR TO THE PRESENTATION, HE HAD COMPLETED ANOTHER 5?DAY COURSE OF FILGRA
     Route: 065

REACTIONS (3)
  - Back pain [Unknown]
  - Rhabdomyolysis [Recovered/Resolved]
  - Acute kidney injury [Recovered/Resolved]
